FAERS Safety Report 15826794 (Version 1)
Quarter: 2019Q1

REPORT INFORMATION
  Report Type: Spontaneous
  Country: US (occurrence: US)
  Receive Date: 20190115
  Receipt Date: 20190115
  Transmission Date: 20190417
  Serious: Yes (Other)
  Sender: FDA-Public Use
  Company Number: US-AKORN PHARMACEUTICALS-2019AKN00017

PATIENT
  Age: 16 Year
  Sex: Male

DRUGS (2)
  1. MYORISAN [Suspect]
     Active Substance: ISOTRETINOIN
     Indication: ACNE CYSTIC
     Dosage: 40 MG, 1X/DAY
     Route: 048
     Dates: start: 20180801, end: 20181216
  2. TRIAMCINOLONE ACETONIDE. [Concomitant]
     Active Substance: TRIAMCINOLONE ACETONIDE
     Dosage: TWICE DAILY, AS NEEDED

REACTIONS (8)
  - Crying [Unknown]
  - Blood triglycerides increased [Unknown]
  - Blood cholesterol increased [Unknown]
  - Skin lesion [Recovered/Resolved]
  - Off label use [Recovered/Resolved]
  - Cheilitis [Unknown]
  - Xerosis [Unknown]
  - Depression [Recovering/Resolving]

NARRATIVE: CASE EVENT DATE: 20180801
